FAERS Safety Report 5916850-6 (Version None)
Quarter: 2008Q4

REPORT INFORMATION
  Report Type: 
  Country: None (occurrence: None)
  Receive Date: 20081013
  Receipt Date: 20081003
  Transmission Date: 20090506
  Serious: Yes (Hospitalization)
  Sender: FDA-Public Use
  Company Number: GB-PFIZER INC-2008084033

PATIENT
  Age: 74 Year
  Sex: Male

DRUGS (12)
  1. ATORVASTATIN CALCIUM [Interacting]
     Indication: HYPERCHOLESTEROLAEMIA
  2. FLOXACILLIN SODIUM [Suspect]
     Indication: OSTEOMYELITIS
  3. FUCIDINE CAP [Interacting]
     Indication: OSTEOMYELITIS
  4. AMLODIPINE [Concomitant]
  5. ACETYLSALICYLIC ACID SRT [Concomitant]
  6. BISOPROLOL [Concomitant]
  7. CLOPIDOGREL [Concomitant]
  8. FUROSEMIDE [Concomitant]
  9. INSULIN [Concomitant]
  10. LANSOPRAZOLE [Concomitant]
  11. SPIRONOLACTONE [Concomitant]
  12. EPOGEN [Concomitant]

REACTIONS (2)
  - DRUG INTERACTION [None]
  - RHABDOMYOLYSIS [None]
